FAERS Safety Report 5794464-9 (Version None)
Quarter: 2008Q2

REPORT INFORMATION
  Report Type: 
  Country: None (occurrence: None)
  Receive Date: 20080630
  Receipt Date: 20080616
  Transmission Date: 20081010
  Serious: Yes (Other)
  Sender: FDA-Public Use
  Company Number: PHHY2008FR11691

PATIENT
  Age: 2 Year
  Sex: Male

DRUGS (1)
  1. TEGRETOL [Suspect]
     Indication: EPILEPSY
     Dosage: 20MG/ML;140MG/ DAY
     Dates: start: 20080504

REACTIONS (2)
  - BODY TEMPERATURE INCREASED [None]
  - SWELLING FACE [None]
